FAERS Safety Report 8902165 (Version 1)
Quarter: 2012Q4

REPORT INFORMATION
  Report Type: Report from Study
  Country: US (occurrence: US)
  Receive Date: 20121112
  Receipt Date: 20121112
  Transmission Date: 20130627
  Serious: Yes (Other)
  Sender: FDA-Public Use
  Company Number: US-UCBSA-070669

PATIENT
  Sex: Female

DRUGS (6)
  1. KEPPRA [Suspect]
     Indication: EPILEPSY
     Dosage: DAILY DOSE: 1500 MG
  2. VITAMIN D3 [Concomitant]
     Indication: VITAMIN D DEFICIENCY
     Route: 048
  3. SYNTHROID [Concomitant]
     Indication: HYPOTHYROIDISM
     Route: 048
  4. FOLIC ACID [Concomitant]
     Indication: PREGNANCY
     Route: 048
  5. PRENATAL VITAMIN W/DHA [Concomitant]
     Indication: PREGNANCY
     Dosage: 1 TAB
     Route: 048
     Dates: start: 20110809
  6. LOVENOX [Concomitant]
     Indication: COAGULOPATHY
     Route: 058
     Dates: start: 20110809

REACTIONS (4)
  - Grand mal convulsion [Unknown]
  - Petit mal epilepsy [Unknown]
  - Muscle spasms [Unknown]
  - Pregnancy [Recovered/Resolved]
